FAERS Safety Report 8990170 (Version 1)
Quarter: 2012Q4

REPORT INFORMATION
  Report Type: 
  Country: CA (occurrence: CA)
  Receive Date: 20121228
  Receipt Date: 20121228
  Transmission Date: 20130627
  Serious: Yes (Hospitalization, Other)
  Sender: FDA-Public Use
  Company Number: CA-AMGEN-CANSP2012077931

PATIENT
  Age: 64 Year
  Sex: Female
  Weight: 65.76 kg

DRUGS (3)
  1. ADVAIR [Concomitant]
     Dosage: 550 mg, bid
  2. PROLIA [Suspect]
     Indication: OSTEOPOROSIS POSTMENOPAUSAL
     Dosage: 60 mg, q6mo
     Route: 058
     Dates: start: 20120628
  3. SPIRIVA [Concomitant]
     Dosage: 18 mg, UNK
     Route: 048

REACTIONS (2)
  - Breast cancer [Not Recovered/Not Resolved]
  - Gait disturbance [Recovering/Resolving]
